FAERS Safety Report 16677843 (Version 4)
Quarter: 2019Q4

REPORT INFORMATION
  Report Type: Report from Study
  Country: None (occurrence: GB)
  Receive Date: 20190807
  Receipt Date: 20191210
  Transmission Date: 20200122
  Serious: Yes (Hospitalization, Other)
  Sender: FDA-Public Use
  Company Number: GB-ABBVIE-19K-167-2876062-00

PATIENT
  Age: 56 Year
  Sex: Male

DRUGS (3)
  1. IMRALDI [Suspect]
     Active Substance: ADALIMUMAB
     Indication: PSORIATIC ARTHROPATHY
     Route: 058
     Dates: start: 20190101
  2. HUMIRA [Suspect]
     Active Substance: ADALIMUMAB
     Indication: PRODUCT USED FOR UNKNOWN INDICATION
     Route: 058
  3. CARBAMAZEPINE. [Suspect]
     Active Substance: CARBAMAZEPINE
     Indication: FACIAL SPASM
     Route: 065

REACTIONS (16)
  - Groin pain [Unknown]
  - Rash [Recovered/Resolved]
  - Salivary gland mass [Not Recovered/Not Resolved]
  - Mumps [Unknown]
  - Facial paralysis [Unknown]
  - Injection site haemorrhage [Unknown]
  - Injection site pain [Unknown]
  - Drug ineffective [Unknown]
  - Refusal of treatment by patient [Unknown]
  - Pyrexia [Unknown]
  - Product substitution issue [Unknown]
  - Facial spasm [Not Recovered/Not Resolved]
  - Injection site vesicles [Recovered/Resolved]
  - Drug hypersensitivity [Unknown]
  - Hospitalisation [Unknown]
  - Device issue [Unknown]

NARRATIVE: CASE EVENT DATE: 20190918
